FAERS Safety Report 18570094 (Version 13)
Quarter: 2022Q3

REPORT INFORMATION
  Report Type: Report from Study
  Country: US (occurrence: US)
  Receive Date: 20201202
  Receipt Date: 20220706
  Transmission Date: 20221027
  Serious: Yes (Other)
  Sender: FDA-Public Use
  Company Number: US-NOVARTISPH-NVSC2020US314352

PATIENT
  Sex: Female

DRUGS (2)
  1. OMNITROPE [Suspect]
     Active Substance: SOMATROPIN
     Indication: Product used for unknown indication
     Dosage: UNK
     Route: 065
  2. AFINITOR [Suspect]
     Active Substance: EVEROLIMUS
     Indication: Product used for unknown indication
     Dosage: UNK
     Route: 065

REACTIONS (8)
  - Bone cancer [Unknown]
  - Disease progression [Unknown]
  - Arthritis [Unknown]
  - Weight increased [Unknown]
  - Feeling abnormal [Unknown]
  - Dyspnoea [Unknown]
  - Asthenia [Unknown]
  - Inappropriate schedule of product administration [Unknown]
